FAERS Safety Report 15783412 (Version 3)
Quarter: 2019Q1

REPORT INFORMATION
  Report Type: Spontaneous
  Country: GB (occurrence: GB)
  Receive Date: 20190102
  Receipt Date: 20190304
  Transmission Date: 20190417
  Serious: Yes (Disabling, Other)
  Sender: FDA-Public Use
  Company Number: GB-MYLANLABS-2018M1097978

PATIENT
  Age: 60 Year
  Sex: Female
  Weight: 60.32 kg

DRUGS (17)
  1. AMOXICILLIN. [Suspect]
     Active Substance: AMOXICILLIN
     Indication: PRODUCT USED FOR UNKNOWN INDICATION
     Dosage: FOR 1 WEEK
     Dates: start: 201802
  2. RETINOL [Concomitant]
     Active Substance: RETINOL
     Dosage: UNK
  3. MULTIVITAMIN                       /08277001/ [Concomitant]
     Active Substance: VITAMINS
     Dosage: UNK
  4. MASTIC COMPOUND [Concomitant]
     Dosage: UNK
  5. MAGNESIUM [Concomitant]
     Active Substance: MAGNESIUM
     Dosage: UNK
  6. CLARITHROMYCIN. [Suspect]
     Active Substance: CLARITHROMYCIN
     Indication: LOWER RESPIRATORY TRACT INFECTION
     Dosage: 1000 MILLIGRAM, QD
     Route: 048
     Dates: start: 20180213, end: 20180218
  7. PREDNISOLONE MYLAN [Suspect]
     Active Substance: PREDNISOLONE
     Indication: LOWER RESPIRATORY TRACT INFECTION
     Dosage: 15 MILLIGRAM, QD
     Route: 048
     Dates: start: 20180213, end: 20180218
  8. VITAMIN D                          /00107901/ [Concomitant]
     Active Substance: ERGOCALCIFEROL
     Dosage: UNK
  9. SYMBICORT [Concomitant]
     Active Substance: BUDESONIDE\FORMOTEROL FUMARATE DIHYDRATE
     Indication: ASTHMA
     Dosage: UNK
     Route: 055
  10. VITAMIN A                          /00056001/ [Suspect]
     Active Substance: RETINOL
     Dosage: UNK
  11. COD-LIVER OIL [Concomitant]
     Active Substance: COD LIVER OIL
     Dosage: UNK
  12. CLARITHROMYCIN. [Suspect]
     Active Substance: CLARITHROMYCIN
     Dosage: 500 MILLIGRAM, QD
     Route: 048
     Dates: start: 20180213, end: 20180218
  13. PROBIOTIC                          /06395501/ [Concomitant]
     Active Substance: BIFIDOBACTERIUM ANIMALIS LACTIS
     Dosage: UNK
  14. AMOXICILLIN/CLAVULANIC ACID [Suspect]
     Active Substance: AMOXICILLIN\CLAVULANIC ACID
     Indication: LOWER RESPIRATORY TRACT INFECTION
     Dosage: 3 DOSAGE FORM, QD (500/125MG)
     Route: 048
     Dates: start: 20180213, end: 20180218
  15. AMOXICILLIN/CLAVULANIC ACID [Suspect]
     Active Substance: AMOXICILLIN\CLAVULANIC ACID
     Dosage: 1 DOSAGE FORM, QD (500/125MG)
     Route: 048
     Dates: start: 20180213, end: 20180218
  16. PREDNISOLONE MYLAN [Suspect]
     Active Substance: PREDNISOLONE
     Dosage: 5 MILLIGRAM, QD
     Route: 048
     Dates: start: 20180213, end: 20180218
  17. CITALOPRAM [Concomitant]
     Active Substance: CITALOPRAM HYDROBROMIDE
     Dosage: UNK

REACTIONS (7)
  - Abnormal loss of weight [Unknown]
  - Anxiety [Unknown]
  - Sleep disorder [Unknown]
  - Asthenia [Unknown]
  - Dysphagia [Not Recovered/Not Resolved]
  - Depression [Unknown]
  - Fatigue [Unknown]

NARRATIVE: CASE EVENT DATE: 201802
